FAERS Safety Report 9192166 (Version 1)
Quarter: 2013Q1

REPORT INFORMATION
  Report Type: Spontaneous
  Country: JP (occurrence: None)
  Receive Date: 20130325
  Receipt Date: 20130325
  Transmission Date: 20140127
  Serious: Yes (Disabling, Other)
  Sender: FDA-Public Use
  Company Number: FK201300809

PATIENT
  Age: 37 Year
  Sex: Male

DRUGS (3)
  1. ACYCLOVIR SODIUM (MANUFACTURER UNKNOWN) (ACYCLOVIR SODIUM) (ACYCLOVIR SODIUM) [Suspect]
     Indication: OPHTHALMIC HERPES SIMPLEX
  2. ACYCLOVIR SODIUM (MANUFACTURER UNKNOWN) (ACYCLOVIR SODIUM) (ACYCLOVIR SODIUM) [Suspect]
  3. FLUOROMETHOLONE [Suspect]

REACTIONS (4)
  - Corneal scar [None]
  - Drug resistance [None]
  - Sensation of foreign body [None]
  - Ocular hyperaemia [None]
